FAERS Safety Report 7230972-1 (Version None)
Quarter: 2011Q1

REPORT INFORMATION
  Report Type: 
  Country: None (occurrence: None)
  Receive Date: 20110118
  Receipt Date: 20110106
  Transmission Date: 20110831
  Serious: Yes (Hospitalization)
  Sender: FDA-Public Use
  Company Number: JP-AMGEN-KDC434267

PATIENT

DRUGS (25)
  1. LANSOPRAZOLE [Concomitant]
     Route: 048
  2. GRANISETRON HCL [Concomitant]
     Route: 042
  3. PRIMPERAN TAB [Concomitant]
     Route: 042
  4. PYDOXAL [Concomitant]
     Route: 048
  5. DECADRON [Concomitant]
     Route: 042
  6. LANSOPRAZOLE [Concomitant]
     Indication: REFLUX OESOPHAGITIS
     Route: 048
  7. OXALIPLATIN [Suspect]
     Indication: COLORECTAL CANCER
     Route: 041
     Dates: start: 20100803, end: 20100817
  8. FLUOROURACIL [Concomitant]
     Route: 041
     Dates: start: 20100803, end: 20100817
  9. GRANISETRON HCL [Concomitant]
     Route: 041
  10. HIRUDOID                           /00723701/ [Concomitant]
     Route: 062
  11. MAGMITT [Concomitant]
     Route: 048
  12. POSTERISAN [Concomitant]
     Route: 062
  13. HYPEN [Concomitant]
     Indication: CANCER PAIN
     Route: 048
  14. PANITUMUMAB [Suspect]
     Indication: COLORECTAL CANCER
     Dosage: 6 MG/KG, Q2WK
     Route: 041
     Dates: start: 20100803, end: 20100817
  15. KYTRIL [Concomitant]
     Route: 048
  16. MINOCYCLINE HYDROCHLORIDE [Concomitant]
     Route: 048
  17. TELEMINSOFT [Concomitant]
     Route: 054
  18. HYPEN [Concomitant]
     Route: 048
  19. FLUOROURACIL [Concomitant]
     Route: 040
     Dates: start: 20100803, end: 20100817
  20. FLUOROURACIL [Concomitant]
     Dosage: UNK UNK, UNK
     Route: 040
     Dates: start: 20100802
  21. CALCIUM LEVOFOLINATE [Concomitant]
     Indication: COLORECTAL CANCER
     Route: 041
     Dates: start: 20100803, end: 20100817
  22. PENTAZOCINE LACTATE [Concomitant]
     Route: 042
  23. FLUOROURACIL [Concomitant]
     Indication: COLORECTAL CANCER
     Dosage: UNK UNK, UNK
     Route: 040
     Dates: start: 20100802
  24. PURSENNID [Concomitant]
     Route: 048
  25. CORTICOSTEROIDS [Concomitant]
     Indication: PROPHYLAXIS
     Route: 065

REACTIONS (6)
  - ABDOMINAL PAIN LOWER [None]
  - DERMATITIS ACNEIFORM [None]
  - PAIN IN EXTREMITY [None]
  - LOWER GASTROINTESTINAL HAEMORRHAGE [None]
  - STOMATITIS [None]
  - PRURITUS [None]
